FAERS Safety Report 18941729 (Version 2)
Quarter: 2021Q1

REPORT INFORMATION
  Report Type: Spontaneous
  Country: ES (occurrence: ES)
  Receive Date: 20210225
  Receipt Date: 20210312
  Transmission Date: 20210420
  Serious: Yes (Hospitalization, Other)
  Sender: FDA-Public Use
  Company Number: ES-009507513-2102ESP006560

PATIENT
  Age: 61 Year
  Sex: Male

DRUGS (7)
  1. PIPERACILLIN AND TAZOBACTAM [Suspect]
     Active Substance: PIPERACILLIN SODIUM\TAZOBACTAM SODIUM
     Indication: PNEUMONIA
     Dosage: UNK
     Dates: start: 202007
  2. TRUVADA [Suspect]
     Active Substance: EMTRICITABINE\TENOFOVIR DISOPROXIL FUMARATE
     Indication: HIV INFECTION
     Dosage: UNK
     Dates: start: 201512
  3. ISENTRESS [Suspect]
     Active Substance: RALTEGRAVIR POTASSIUM
     Indication: HIV INFECTION
     Dosage: UNK
     Dates: start: 201512
  4. FLUCONAZOLE. [Suspect]
     Active Substance: FLUCONAZOLE
     Indication: OESOPHAGEAL CANDIDIASIS
     Dosage: LOW DOSES
     Dates: start: 202007
  5. FLUCONAZOLE. [Suspect]
     Active Substance: FLUCONAZOLE
     Dosage: 200 MG EVERY 12 HOURS
  6. SULFAMETHOXAZOLE (+) TRIMETHOPRIM [Suspect]
     Active Substance: SULFAMETHOXAZOLE\TRIMETHOPRIM
     Indication: PNEUMONIA
     Dosage: UNK
     Dates: start: 202007
  7. NYSTATIN. [Suspect]
     Active Substance: NYSTATIN
     Dosage: UNK
     Dates: start: 202007

REACTIONS (19)
  - Pulmonary nocardiosis [Unknown]
  - Pulmonary mass [Unknown]
  - Pneumonia [Unknown]
  - Infectious pleural effusion [Unknown]
  - Oesophageal candidiasis [Unknown]
  - Cryptococcosis [Recovering/Resolving]
  - Hodgkin^s disease stage IV [Unknown]
  - Nocardiosis [Unknown]
  - Hypoxic-ischaemic encephalopathy [Unknown]
  - Tremor [Unknown]
  - Cytomegalovirus test positive [Unknown]
  - Oesophageal candidiasis [Recovered/Resolved]
  - Cholestasis [Unknown]
  - Neisseria test positive [Unknown]
  - Adjustment disorder with depressed mood [Unknown]
  - Lymph node calcification [Unknown]
  - Decreased appetite [Unknown]
  - Cerebral atrophy [Unknown]
  - Central nervous system lesion [Unknown]

NARRATIVE: CASE EVENT DATE: 2015
